FAERS Safety Report 13009066 (Version 1)
Quarter: 2016Q4

REPORT INFORMATION
  Report Type: Spontaneous
  Country: US (occurrence: US)
  Receive Date: 20161208
  Receipt Date: 20161208
  Transmission Date: 20170207
  Serious: Yes (Hospitalization)
  Sender: FDA-Public Use
  Company Number: US-G+W LABS-GW2016US000192

PATIENT

DRUGS (2)
  1. ALBUTEROL SULFATE. [Suspect]
     Active Substance: ALBUTEROL SULFATE
     Indication: CHEST PAIN
     Dosage: AT LEAST 4 TIME IN 12 HOURS
     Route: 050
  2. ALBUTEROL SULFATE. [Suspect]
     Active Substance: ALBUTEROL SULFATE
     Indication: DYSPNOEA
     Dosage: UP TO 2 TIMES A DAY, ONLY AS NEEDED
     Route: 050

REACTIONS (2)
  - Intentional overdose [Recovered/Resolved]
  - Stress cardiomyopathy [Recovered/Resolved]
